FAERS Safety Report 21591038 (Version 1)
Quarter: 2022Q4

REPORT INFORMATION
  Report Type: Spontaneous
  Country: US (occurrence: None)
  Receive Date: 20221111
  Receipt Date: 20221111
  Transmission Date: 20230113
  Serious: Yes (Other)
  Sender: FDA-Public Use
  Company Number: None

PATIENT
  Age: 61 Year
  Sex: Female
  Weight: 86.85 kg

DRUGS (2)
  1. NEBIVOLOL [Suspect]
     Active Substance: NEBIVOLOL
     Indication: Hypertension
     Dosage: FREQUENCY : TWICE A DAY;?
     Route: 048
     Dates: start: 20220321, end: 20220414
  2. NEBIVOLOL [Concomitant]
     Active Substance: NEBIVOLOL
     Dates: start: 20220321, end: 20220414

REACTIONS (4)
  - Insurance issue [None]
  - Product substitution issue [None]
  - Blood pressure inadequately controlled [None]
  - Rash [None]

NARRATIVE: CASE EVENT DATE: 20220414
